FAERS Safety Report 4705775-X (Version None)
Quarter: 2005Q3

REPORT INFORMATION
  Report Type: 
  Country: None (occurrence: None)
  Receive Date: 20050701
  Receipt Date: 20050128
  Transmission Date: 20060218
  Serious: Yes (Hospitalization, Other)
  Sender: FDA-Public Use
  Company Number: US-MERCK-0501USA04380

PATIENT
  Age: 75 Year
  Sex: Female

DRUGS (8)
  1. VIOXX [Suspect]
     Indication: SPINAL OSTEOARTHRITIS
     Route: 048
     Dates: start: 19991029, end: 19991031
  2. VIOXX [Suspect]
     Route: 048
     Dates: start: 19991101, end: 20010802
  3. VIOXX [Suspect]
     Route: 048
     Dates: start: 20010802, end: 20011201
  4. VIOXX [Suspect]
     Route: 048
     Dates: start: 20010101
  5. VIOXX [Suspect]
     Indication: POLYMYALGIA RHEUMATICA
     Route: 048
     Dates: start: 19991029, end: 19991031
  6. VIOXX [Suspect]
     Route: 048
     Dates: start: 19991101, end: 20010802
  7. VIOXX [Suspect]
     Route: 048
     Dates: start: 20010802, end: 20011201
  8. VIOXX [Suspect]
     Route: 048
     Dates: start: 20010101

REACTIONS (46)
  - ABDOMINAL PAIN [None]
  - AORTIC VALVE INCOMPETENCE [None]
  - AORTIC VALVE STENOSIS [None]
  - ARTHRALGIA [None]
  - BACK INJURY [None]
  - BACK PAIN [None]
  - BLOOD CALCIUM INCREASED [None]
  - BLOOD PRESSURE INCREASED [None]
  - CEREBRAL INFARCTION [None]
  - CEREBROVASCULAR ACCIDENT [None]
  - CONTUSION [None]
  - DEPRESSION [None]
  - DILATATION ATRIAL [None]
  - DIVERTICULUM [None]
  - DYSPEPSIA [None]
  - GASTROINTESTINAL HAEMORRHAGE [None]
  - HEADACHE [None]
  - HERPES ZOSTER [None]
  - HIATUS HERNIA [None]
  - HYPOCOAGULABLE STATE [None]
  - INSOMNIA [None]
  - INTERVERTEBRAL DISC DEGENERATION [None]
  - INTERVERTEBRAL DISC PROTRUSION [None]
  - IRON DEFICIENCY ANAEMIA [None]
  - KYPHOSIS [None]
  - LIGAMENT SPRAIN [None]
  - MENTAL STATUS CHANGES [None]
  - MITRAL VALVE INCOMPETENCE [None]
  - MITRAL VALVE STENOSIS [None]
  - MUSCLE SPASMS [None]
  - MUSCLE STRAIN [None]
  - MYOFASCIAL PAIN SYNDROME [None]
  - NEURALGIA [None]
  - OSTEITIS [None]
  - OSTEOARTHRITIS [None]
  - OSTEOPENIA [None]
  - PATHOLOGICAL FRACTURE [None]
  - POST HERPETIC NEURALGIA [None]
  - SCIATICA [None]
  - SEDATION [None]
  - SPINAL OSTEOARTHRITIS [None]
  - SPONDYLOLISTHESIS [None]
  - TRANSIENT ISCHAEMIC ATTACK [None]
  - TRICUSPID VALVE INCOMPETENCE [None]
  - VAGINAL HAEMORRHAGE [None]
  - VENTRICULAR HYPERTROPHY [None]
